FAERS Safety Report 6751467-5 (Version None)
Quarter: 2010Q2

REPORT INFORMATION
  Report Type: 
  Country: None (occurrence: None)
  Receive Date: 20100602
  Receipt Date: 20100525
  Transmission Date: 20101027
  Serious: Yes (Other)
  Sender: FDA-Public Use
  Company Number: US-SANOFI-AVENTIS-2010SA020878

PATIENT
  Age: 82 Year
  Sex: Female
  Weight: 73 kg

DRUGS (12)
  1. LANTUS [Suspect]
     Indication: TYPE 2 DIABETES MELLITUS
     Dosage: INCREASES HER INSULIN 2 UNITS WHEN BS INCREASES. DOSE:20 UNIT(S)
     Route: 058
     Dates: start: 20050101
  2. SOLOSTAR [Suspect]
     Indication: TYPE 2 DIABETES MELLITUS
     Dates: start: 20050101
  3. COUMADIN [Concomitant]
     Indication: ATRIAL FIBRILLATION
     Dosage: DOSE (DEPENDING ON INR)
  4. OMEPRAZOLE [Concomitant]
     Route: 048
  5. PRAVASTATIN [Concomitant]
  6. ARIMIDEX [Concomitant]
     Indication: BREAST CANCER
  7. COZAAR [Concomitant]
     Indication: HYPERTENSION
     Dates: start: 20080101
  8. ECOTRIN [Concomitant]
     Indication: PROPHYLAXIS
  9. CHONDROITIN SULFATE/GLUCOSAMINE [Concomitant]
     Indication: ARTHRITIS
     Dates: start: 20050101
  10. LOVAZA [Concomitant]
  11. COENZYME Q10 [Concomitant]
  12. ALL OTHER THERAPEUTIC PRODUCTS [Concomitant]

REACTIONS (3)
  - BLOOD GLUCOSE INCREASED [None]
  - BREAST CANCER [None]
  - GLYCOSYLATED HAEMOGLOBIN INCREASED [None]
